FAERS Safety Report 9432417 (Version 1)
Quarter: 2013Q3

REPORT INFORMATION
  Report Type: Spontaneous
  Country: US (occurrence: US)
  Receive Date: 20130731
  Receipt Date: 20130731
  Transmission Date: 20140515
  Serious: Yes (Hospitalization)
  Sender: FDA-Public Use
  Company Number: US-JNJFOC-20130711841

PATIENT
  Sex: Female
  Weight: 72.58 kg

DRUGS (5)
  1. RISPERDAL [Suspect]
     Indication: PRODUCT USED FOR UNKNOWN INDICATION
     Route: 065
  2. CHANTIX [Interacting]
     Indication: SMOKING CESSATION THERAPY
     Route: 065
  3. PROZAC [Suspect]
     Indication: PRODUCT USED FOR UNKNOWN INDICATION
     Route: 065
  4. LITHIUM [Interacting]
     Indication: PRODUCT USED FOR UNKNOWN INDICATION
     Route: 065
  5. SEROQUEL [Suspect]
     Indication: PRODUCT USED FOR UNKNOWN INDICATION
     Route: 065

REACTIONS (11)
  - Toxicity to various agents [Unknown]
  - Blindness [Unknown]
  - Coma [Unknown]
  - Nail discolouration [Unknown]
  - Loss of consciousness [Recovered/Resolved]
  - Drug interaction [Unknown]
  - Diarrhoea [Unknown]
  - Influenza [Unknown]
  - Vomiting [Unknown]
  - Asthenia [Unknown]
  - Activities of daily living impaired [Unknown]
